FAERS Safety Report 6489908-3 (Version None)
Quarter: 2009Q4

REPORT INFORMATION
  Report Type: 
  Country: None (occurrence: None)
  Receive Date: 20091211
  Receipt Date: 20091207
  Transmission Date: 20100525
  Serious: Yes (Death, Other)
  Sender: FDA-Public Use
  Company Number: US-JNJFOC-20091202712

PATIENT
  Age: 8 Year
  Sex: Male

DRUGS (2)
  1. RISPERDAL [Suspect]
     Indication: AUTISM
     Route: 048
  2. ALBUTEROL [Suspect]
     Indication: ASTHMA
     Route: 055

REACTIONS (3)
  - ASTHMA [None]
  - MUCOUS MEMBRANE DISORDER [None]
  - RESPIRATORY ARREST [None]
